FAERS Safety Report 9214368 (Version 1)
Quarter: 2013Q2

REPORT INFORMATION
  Report Type: Report from Study
  Country: GB (occurrence: GB)
  Receive Date: 20130405
  Receipt Date: 20130405
  Transmission Date: 20140414
  Serious: Yes (Other)
  Sender: FDA-Public Use
  Company Number: GB-BAXTER-2013BAX013025

PATIENT
  Sex: 0

DRUGS (10)
  1. CYCLOPHOSPHAMIDE INJECTION 1G [Suspect]
     Indication: HODGKIN^S DISEASE
     Dosage: DAYS 1 AND 8 X2
     Route: 042
  2. VINCRISTINE [Suspect]
     Indication: HODGKIN^S DISEASE
     Dosage: DAY 1, 8, 15 X2
     Route: 042
  3. VINCRISTINE [Suspect]
     Dosage: CAPPED PER DOSE
  4. VINCRISTINE [Suspect]
     Dosage: DAY 1 AND 8 X2
     Route: 042
  5. VINCRISTINE [Suspect]
     Dosage: CAPPED PER DOSE
  6. ETOPOSIDE [Suspect]
     Indication: HODGKIN^S DISEASE
     Dosage: DAYS 1-5 X2
     Route: 042
  7. ADRIAMYCIN [Suspect]
     Indication: HODGKIN^S DISEASE
     Dosage: DAY 1 AND 15 X2
     Route: 042
  8. PREDNISOLONE [Suspect]
     Indication: HODGKIN^S DISEASE
     Dosage: DAY 1-15  X 2
     Route: 048
  9. PREDNISOLONE [Suspect]
     Dosage: DAY 1-15 (COPP) X 2
     Route: 048
  10. PROCARBAZINE [Suspect]
     Indication: HODGKIN^S DISEASE
     Dosage: DAY 1-15 X2
     Route: 048

REACTIONS (1)
  - Neurotoxicity [Recovered/Resolved]
